FAERS Safety Report 23948569 (Version 1)
Quarter: 2024Q2

REPORT INFORMATION
  Report Type: Spontaneous
  Country: US (occurrence: US)
  Receive Date: 20240607
  Receipt Date: 20240607
  Transmission Date: 20240715
  Serious: No
  Sender: FDA-Public Use
  Company Number: US-ABBVIE-5784777

PATIENT
  Sex: Female

DRUGS (4)
  1. BOTOX [Suspect]
     Active Substance: ONABOTULINUMTOXINA
     Indication: Product used for unknown indication
     Dosage: TIME INTERVAL: AS NECESSARY
     Route: 065
  2. DUPIXENT [Suspect]
     Active Substance: DUPILUMAB
     Indication: Asthma
     Dosage: 300MG/2 ML
     Route: 058
  3. DUPIXENT [Suspect]
     Active Substance: DUPILUMAB
     Indication: Asthma
     Dosage: 300MG/2 ML
     Route: 058
  4. SYMBICORT [Suspect]
     Active Substance: BUDESONIDE\FORMOTEROL FUMARATE DIHYDRATE
     Indication: Product used for unknown indication
     Route: 065

REACTIONS (12)
  - Nasal dryness [Unknown]
  - Depression [Unknown]
  - Therapeutic response unexpected [Unknown]
  - Chest discomfort [Unknown]
  - Dyspnoea [Unknown]
  - Epistaxis [Unknown]
  - Exfoliative rash [Unknown]
  - Brain fog [Unknown]
  - Dry eye [Unknown]
  - Injection site pain [Unknown]
  - Fractional exhaled nitric oxide abnormal [Unknown]
  - Eye disorder [Unknown]
